FAERS Safety Report 6622800-X (Version None)
Quarter: 2010Q1

REPORT INFORMATION
  Report Type: 
  Country: None (occurrence: None)
  Receive Date: 20100310
  Receipt Date: 20100302
  Transmission Date: 20100710
  Serious: Yes (Hospitalization)
  Sender: FDA-Public Use
  Company Number: US-ELI_LILLY_AND_COMPANY-US201002000171

PATIENT
  Sex: Male

DRUGS (13)
  1. GEMCITABINE HCL [Suspect]
     Indication: PANCREATIC CARCINOMA
     Dosage: 2100 MG/M2, UNKNOWN
     Route: 065
     Dates: start: 20091015, end: 20100119
  2. CARVEDILOL [Concomitant]
     Dosage: 25 MG, UNK
     Route: 048
  3. ADVAIR DISKUS 100/50 [Concomitant]
     Dosage: 250 UG, UNK
     Route: 055
  4. ASPIRIN [Concomitant]
     Dosage: 81 MG, UNK
     Route: 048
  5. BUPROPION HCL [Concomitant]
     Dosage: 300 MG, DAILY (1/D)
     Route: 048
  6. COMPAZINE [Concomitant]
     Dosage: 15 MG, UNK
     Route: 048
  7. ETODOLAC [Concomitant]
     Dosage: 500 MG, UNK
     Route: 048
  8. HUMULIN N [Concomitant]
     Route: 058
  9. MULTI-VITAMINS [Concomitant]
     Dosage: 1 D/F, UNK
     Route: 048
  10. OMEPRAZOLE [Concomitant]
     Dosage: 40 MG, UNK
     Route: 048
  11. SIMVASTATIN [Concomitant]
     Dosage: 80 MG, UNK
     Route: 048
  12. VITAMIN D [Concomitant]
     Dosage: 1000 U, UNK
  13. ZOLPIDEM [Concomitant]
     Dosage: 5 MG, UNK
     Route: 048

REACTIONS (1)
  - UPPER GASTROINTESTINAL HAEMORRHAGE [None]
